FAERS Safety Report 16051223 (Version 1)
Quarter: 2019Q1

REPORT INFORMATION
  Report Type: Spontaneous
  Country: US (occurrence: US)
  Receive Date: 20190208
  Receipt Date: 20190208
  Transmission Date: 20190418
  Serious: Yes (Hospitalization)
  Sender: FDA-Public Use
  Company Number: None

PATIENT
  Age: 49 Year
  Sex: Female

DRUGS (5)
  1. ORKAMBI [Suspect]
     Active Substance: IVACAFTOR\LUMACAFTOR
     Indication: CYSTIC FIBROSIS
     Dosage: OTHER DOSE:400MG 1250MG;?
     Route: 048
     Dates: start: 20151013
  2. PULMONZYME [Concomitant]
  3. PULMOZYME [Suspect]
     Active Substance: DORNASE ALFA
     Indication: CYSTIC FIBROSIS
     Dates: start: 20171010
  4. AQUWORK [Concomitant]
  5. OKAMBIL [Concomitant]

REACTIONS (2)
  - Condition aggravated [None]
  - Lung disorder [None]

NARRATIVE: CASE EVENT DATE: 20190131
